FAERS Safety Report 10363837 (Version 2)
Quarter: 2014Q4

REPORT INFORMATION
  Report Type: Spontaneous
  Country: FR (occurrence: None)
  Receive Date: 20140801
  Receipt Date: 20141126
  Transmission Date: 20150528
  Serious: Yes (Hospitalization)
  Sender: FDA-Public Use
  Company Number: 7308865

PATIENT
  Age: 37 Year
  Sex: Female

DRUGS (2)
  1. LEVOTHYROX [Suspect]
     Active Substance: LEVOTHYROXINE
     Indication: PRODUCT USED FOR UNKNOWN INDICATION
     Dates: start: 20130225
  2. SAIZEN [Suspect]
     Active Substance: SOMATROPIN
     Indication: GROWTH HORMONE DEFICIENCY
     Dosage: 0.5MG, 1 IN 1D
     Dates: start: 201207

REACTIONS (11)
  - Tachycardia [None]
  - Muscle spasms [None]
  - Fatigue [None]
  - Weight increased [None]
  - Dry skin [None]
  - Blood pressure increased [None]
  - Memory impairment [None]
  - Tri-iodothyronine abnormal [None]
  - Myalgia [None]
  - Feeling cold [None]
  - Thyroxine abnormal [None]

NARRATIVE: CASE EVENT DATE: 2013
